FAERS Safety Report 7631237-6 (Version None)
Quarter: 2011Q3

REPORT INFORMATION
  Report Type: 
  Country: None (occurrence: None)
  Receive Date: 20110715
  Receipt Date: 20110630
  Transmission Date: 20111222
  Serious: Yes (Life-Threatening, Other)
  Sender: FDA-Public Use
  Company Number: ALLO20110011

PATIENT
  Age: 24 Year
  Sex: Female

DRUGS (3)
  1. ALLOPURINOL [Suspect]
     Indication: COLITIS ULCERATIVE
     Dosage: 50 MG, ORAL
     Route: 048
  2. MERCAPTOPURINE [Suspect]
     Indication: COLITIS ULCERATIVE
     Dosage: 50 MG, ORAL
     Route: 048
  3. PREDNISONE TAB [Suspect]
     Indication: COLITIS ULCERATIVE
     Dosage: 20 MG, ORAL
     Route: 048

REACTIONS (3)
  - PNEUMOCYSTIS JIROVECI PNEUMONIA [None]
  - LEUKOPENIA [None]
  - DRUG INTERACTION [None]
